FAERS Safety Report 6660667-4 (Version None)
Quarter: 2010Q1

REPORT INFORMATION
  Report Type: 
  Country: None (occurrence: None)
  Receive Date: 20100326
  Receipt Date: 20100302
  Transmission Date: 20100710
  Serious: Yes (Other)
  Sender: FDA-Public Use
  Company Number: B0639217A

PATIENT
  Age: 33 Year
  Sex: Female

DRUGS (1)
  1. HYDROCORTISONE [Suspect]
     Indication: DRUG USE FOR UNKNOWN INDICATION
     Dosage: 10 MG / TWICE PER DAY

REACTIONS (9)
  - 17-HYDROXYPROGESTERONE INCREASED [None]
  - ABDOMINAL DISTENSION [None]
  - ABDOMINAL PAIN [None]
  - AMENORRHOEA [None]
  - BENIGN NEOPLASM OF ADRENAL GLAND [None]
  - BLOOD CORTICOTROPHIN INCREASED [None]
  - BLOOD TESTOSTERONE INCREASED [None]
  - HIRSUTISM [None]
  - WEIGHT INCREASED [None]
